FAERS Safety Report 8592478-7 (Version None)
Quarter: 2012Q3

REPORT INFORMATION
  Report Type: 
  Country: None (occurrence: None)
  Receive Date: 20120814
  Receipt Date: 20120807
  Transmission Date: 20120928
  Serious: Yes (Life-Threatening, Hospitalization)
  Sender: FDA-Public Use
  Company Number: GB-ELI_LILLY_AND_COMPANY-GB201208002246

PATIENT
  Sex: Male

DRUGS (16)
  1. DEXAMETHASONE [Concomitant]
     Dosage: 4 MG, BID
     Route: 048
     Dates: start: 20120725, end: 20120725
  2. TAXOL [Suspect]
     Indication: NON-SMALL CELL LUNG CANCER METASTATIC
     Dosage: 175 MG/M2, UNK
     Route: 042
     Dates: start: 20120726, end: 20120726
  3. INFUMORPH [Concomitant]
     Indication: ANALGESIC THERAPY
     Dosage: 30 MG, BID
     Route: 048
     Dates: start: 20120601
  4. DEXAMETHASONE [Concomitant]
     Dosage: 2 MG, BID
     Route: 048
     Dates: start: 20120727, end: 20120727
  5. DEXAMETHASONE [Concomitant]
     Dosage: 2 MG, TID
     Route: 048
     Dates: start: 20120726, end: 20120726
  6. DEXAMETHASONE [Concomitant]
     Dosage: 2 MG, QD
     Route: 048
     Dates: start: 20120728, end: 20120728
  7. OMEPRAZOLE [Concomitant]
     Indication: ANTACID THERAPY
     Dosage: 20 MG, QD
     Route: 048
     Dates: start: 20120601
  8. CLARITHROMYCIN [Concomitant]
     Indication: NEUTROPENIA
     Dosage: 500 MG, BID
     Route: 048
     Dates: start: 20120802, end: 20120807
  9. PIPERACILLIN AND TAZOBACTAM [Concomitant]
     Indication: PYREXIA
     Dosage: 4.5 G, TID
     Route: 042
     Dates: start: 20120731, end: 20120802
  10. ERYTHROMYCIN [Concomitant]
     Indication: NEUTROPENIA
     Dosage: 500 MG, BID
     Route: 048
     Dates: start: 20120802, end: 20120807
  11. FOLIC ACID [Concomitant]
     Indication: VITAMIN SUPPLEMENTATION
     Dosage: 400 UG, UNK
     Dates: start: 20120605
  12. RAMIPRIL [Concomitant]
     Indication: HYPERTENSION
     Dosage: UNK
     Dates: start: 20090101
  13. PEMETREXED [Suspect]
     Indication: NON-SMALL CELL LUNG CANCER METASTATIC
     Dosage: 500 MG/M2, UNK
     Route: 042
     Dates: start: 20120726, end: 20120726
  14. AMLODIPINE [Concomitant]
     Indication: HYPERTENSION
     Dosage: UNK
     Dates: start: 20090101
  15. METOCLOPRAMIDE [Concomitant]
     Indication: ANTIEMETIC SUPPORTIVE CARE
     Dosage: 10 MG, QD
     Dates: start: 20120726
  16. VITAMIN B-12 [Concomitant]
     Indication: VITAMIN SUPPLEMENTATION
     Dosage: 1 MG, EVERY NINE WEEKS
     Route: 030
     Dates: start: 20120605

REACTIONS (3)
  - METABOLIC ACIDOSIS [None]
  - PULMONARY SEPSIS [None]
  - RENAL FAILURE ACUTE [None]
